FAERS Safety Report 5720227-6 (Version None)
Quarter: 2008Q2

REPORT INFORMATION
  Report Type: 
  Country: None (occurrence: None)
  Receive Date: 20080423
  Receipt Date: 20070920
  Transmission Date: 20081010
  Serious: Yes (Other)
  Sender: FDA-Public Use
  Company Number: 244833

PATIENT
  Age: 74 Year
  Sex: Male

DRUGS (5)
  1. AVASTIN [Suspect]
     Indication: NON-SMALL CELL LUNG CANCER
     Dosage: Q3W
  2. CARBOPLATIN [Concomitant]
  3. TAXOTERE [Concomitant]
  4. GEMZAR [Concomitant]
  5. ERLOTINIB (ERLOTINIB) [Concomitant]

REACTIONS (2)
  - NEOPLASM PROGRESSION [None]
  - WHITE BLOOD CELL COUNT DECREASED [None]
